FAERS Safety Report 14604351 (Version 2)
Quarter: 2018Q1

REPORT INFORMATION
  Report Type: Report from Study
  Country: TT (occurrence: TT)
  Receive Date: 20180306
  Receipt Date: 20180315
  Transmission Date: 20180509
  Serious: Yes (Death)
  Sender: FDA-Public Use
  Company Number: TT-ASTRAZENECA-2018SE27557

PATIENT
  Age: 58 Year
  Sex: Female

DRUGS (2)
  1. BRILINTA [Suspect]
     Active Substance: TICAGRELOR
     Route: 048
  2. VIOXX [Concomitant]
     Active Substance: ROFECOXIB

REACTIONS (1)
  - Death [Fatal]
